FAERS Safety Report 5348614-9 (Version None)
Quarter: 2007Q2

REPORT INFORMATION
  Report Type: 
  Country: None (occurrence: None)
  Receive Date: 20070605
  Receipt Date: 20070523
  Transmission Date: 20071010
  Serious: Yes (Hospitalization)
  Sender: FDA-Public Use
  Company Number: 234211K07USA

PATIENT
  Age: 34 Year
  Sex: Female

DRUGS (3)
  1. REBIF [Suspect]
     Indication: MULTIPLE SCLEROSIS
     Dosage: 44 MCG, 3 IN 1 WEEKS, SUBCUTANEOUS
     Route: 058
     Dates: start: 20060423
  2. ATIVAN [Concomitant]
  3. AMBIEN [Concomitant]

REACTIONS (3)
  - DEPRESSED MOOD [None]
  - HALLUCINATION, AUDITORY [None]
  - SUICIDAL BEHAVIOUR [None]
